FAERS Safety Report 12432265 (Version 1)
Quarter: 2016Q2

REPORT INFORMATION
  Report Type: Spontaneous
  Country: GB (occurrence: GB)
  Receive Date: 20160603
  Receipt Date: 20160603
  Transmission Date: 20160815
  Serious: Yes (Hospitalization)
  Sender: FDA-Public Use
  Company Number: GB-TEVA-663314ACC

PATIENT
  Age: 82 Year
  Sex: Male

DRUGS (2)
  1. DAKTARIN [Interacting]
     Active Substance: MICONAZOLE NITRATE
  2. WARFARIN [Suspect]
     Active Substance: WARFARIN

REACTIONS (2)
  - International normalised ratio increased [Unknown]
  - Drug interaction [Unknown]
